FAERS Safety Report 5725718-X (Version None)
Quarter: 2008Q2

REPORT INFORMATION
  Report Type: 
  Country: None (occurrence: None)
  Receive Date: 20080429
  Receipt Date: 20080422
  Transmission Date: 20081010
  Serious: Yes (Hospitalization, Other)
  Sender: FDA-Public Use
  Company Number: 2008SP005968

PATIENT
  Age: 51 Year
  Sex: Female
  Weight: 108.4097 kg

DRUGS (23)
  1. PEG-INTRON [Suspect]
     Indication: HEPATITIS C
     Dosage: 180 MCG; QW; SC
     Route: 058
     Dates: start: 20080305, end: 20080414
  2. REBETOL [Suspect]
     Indication: HEPATITIS C
     Dosage: 1400 MG;PO
     Route: 048
     Dates: start: 20080305, end: 20080416
  3. AVALIDE [Concomitant]
  4. VICOPROFEN [Concomitant]
  5. CYMBALTA [Concomitant]
  6. PREMARIN [Concomitant]
  7. FOLIC ACID [Concomitant]
  8. FISH OIL [Concomitant]
  9. VITAMIN B-12 [Concomitant]
  10. FLONASE [Concomitant]
  11. AUGEMENTIN [Concomitant]
  12. IMODIUM [Concomitant]
  13. WELLBUTRIN XL [Concomitant]
  14. MORPHINE SULFATE [Concomitant]
  15. OXYCONTIN [Concomitant]
  16. RELACORE [Concomitant]
  17. PHENERGAN [Concomitant]
  18. CIPRO [Concomitant]
  19. OXYCODONE HCL [Concomitant]
  20. FIBER-LAX [Concomitant]
  21. NEOSPORIN /00038301/ [Concomitant]
  22. ZOFRAN [Concomitant]
  23. TRAMADOL HCL [Concomitant]

REACTIONS (14)
  - ACUTE PRERENAL FAILURE [None]
  - BLOOD OSMOLARITY DECREASED [None]
  - BONE MARROW FAILURE [None]
  - DIARRHOEA [None]
  - HYPOVOLAEMIA [None]
  - LARYNGITIS [None]
  - PYREXIA [None]
  - RENAL FAILURE ACUTE [None]
  - RENAL INJURY [None]
  - RENAL TUBULAR NECROSIS [None]
  - RHABDOMYOLYSIS [None]
  - ROAD TRAFFIC ACCIDENT [None]
  - SPINAL COMPRESSION FRACTURE [None]
  - SYNCOPE [None]
